FAERS Safety Report 10549144 (Version 1)
Quarter: 2014Q4

REPORT INFORMATION
  Report Type: Spontaneous
  Country: US (occurrence: None)
  Receive Date: 20141016
  Receipt Date: 20141016
  Transmission Date: 20150529
  Serious: No
  Sender: FDA-Public Use
  Company Number: CABO-14004474

PATIENT
  Age: 54 Year
  Sex: Male

DRUGS (4)
  1. VECTIBIX (PANITUMUMAB) [Concomitant]
  2. DOXIL (PEGYLATED LIPOSOMAL DOXORUBICIN HYDROCHLORIDE) [Concomitant]
  3. NORCO (HYDROCODONE BITARTRATE, PARACETAMOL) [Concomitant]
  4. COMETRIQ [Suspect]
     Active Substance: CABOZANTINIB S-MALATE
     Indication: COLON CANCER
     Route: 048
     Dates: start: 20140629

REACTIONS (4)
  - Off label use [None]
  - Rash [None]
  - Acne [None]
  - Erythema [None]

NARRATIVE: CASE EVENT DATE: 2014
